FAERS Safety Report 18363887 (Version 2)
Quarter: 2020Q4

REPORT INFORMATION
  Report Type: Report from Study
  Country: BR (occurrence: BR)
  Receive Date: 20201009
  Receipt Date: 20201123
  Transmission Date: 20210114
  Serious: Yes (Other)
  Sender: FDA-Public Use
  Company Number: BR-JNJFOC-20200954222

PATIENT
  Age: 40 Year
  Sex: Male
  Weight: 115 kg

DRUGS (3)
  1. LOSARTAN. [Concomitant]
     Active Substance: LOSARTAN
  2. STELARA [Suspect]
     Active Substance: USTEKINUMAB
     Indication: PSORIASIS
     Route: 058
     Dates: start: 20190701
  3. STELARA [Suspect]
     Active Substance: USTEKINUMAB
     Dosage: 2 VIALS OF 45MG
     Route: 058
     Dates: start: 20190923

REACTIONS (3)
  - Gastrectomy [Recovered/Resolved]
  - Product use issue [Unknown]
  - Off label use [Unknown]

NARRATIVE: CASE EVENT DATE: 20200923
